FAERS Safety Report 13908466 (Version 6)
Quarter: 2019Q2

REPORT INFORMATION
  Report Type: Spontaneous
  Country: DE (occurrence: DE)
  Receive Date: 20170826
  Receipt Date: 20190401
  Transmission Date: 20190711
  Serious: Yes (Hospitalization)
  Sender: FDA-Public Use
  Company Number: DE-MYLANLABS-2017M1052066

PATIENT
  Age: 58 Year
  Sex: Female
  Weight: 65 kg

DRUGS (1)
  1. ALENDRONS?URE DURA 70 MG TABLETTEN [Suspect]
     Active Substance: ALENDRONATE SODIUM
     Indication: PRODUCT USED FOR UNKNOWN INDICATION
     Dosage: DAILY DOSE: 70 MG MILLGRAM(S) EVERY WEEKS
     Route: 048
     Dates: start: 201608, end: 201708

REACTIONS (4)
  - Gastritis haemorrhagic [Recovering/Resolving]
  - Hypokalaemia [Recovering/Resolving]
  - Migraine [Recovering/Resolving]
  - Pancreatitis acute [Recovered/Resolved]

NARRATIVE: CASE EVENT DATE: 201708
